FAERS Safety Report 20803029 (Version 1)
Quarter: 2022Q2

REPORT INFORMATION
  Report Type: Spontaneous
  Country: DE (occurrence: None)
  Receive Date: 20220509
  Receipt Date: 20220509
  Transmission Date: 20220721
  Serious: Yes (Other)
  Sender: FDA-Public Use
  Company Number: DE-Merck Healthcare KGaA-9319687

PATIENT
  Age: 71 Year
  Sex: Male

DRUGS (6)
  1. AVELUMAB [Suspect]
     Active Substance: AVELUMAB
     Indication: Renal cell carcinoma
     Dates: start: 20201103, end: 20210120
  2. AVELUMAB [Suspect]
     Active Substance: AVELUMAB
     Dates: start: 202102
  3. AXITINIB [Suspect]
     Active Substance: AXITINIB
     Indication: Renal cell carcinoma
     Dates: start: 20201103, end: 20210120
  4. AXITINIB [Suspect]
     Active Substance: AXITINIB
     Dates: start: 202102
  5. AXITINIB [Suspect]
     Active Substance: AXITINIB
  6. CANDESARTAN [Concomitant]
     Active Substance: CANDESARTAN
     Indication: Hypertension

REACTIONS (5)
  - Hypokalaemia [Unknown]
  - Skin toxicity [Unknown]
  - Fatigue [Unknown]
  - Diarrhoea [Unknown]
  - Hypertension [Unknown]
